FAERS Safety Report 11184127 (Version 1)
Quarter: 2015Q2

REPORT INFORMATION
  Report Type: Spontaneous
  Country: US (occurrence: None)
  Receive Date: 20150611
  Receipt Date: 20150611
  Transmission Date: 20150821
  Serious: Yes (Hospitalization)
  Sender: FDA-Public Use
  Company Number: None

PATIENT
  Age: 84 Year
  Sex: Male
  Weight: 94.1 kg

DRUGS (3)
  1. MELOXICAM. [Suspect]
     Active Substance: MELOXICAM
     Indication: PAIN
     Route: 048
     Dates: start: 20150505, end: 20150604
  2. WARFARIN [Suspect]
     Active Substance: WARFARIN
     Route: 048
     Dates: start: 20130101
  3. MELOXICAM. [Suspect]
     Active Substance: MELOXICAM
     Indication: ATRIAL FIBRILLATION
     Route: 048
     Dates: start: 20150505, end: 20150604

REACTIONS (1)
  - International normalised ratio increased [None]

NARRATIVE: CASE EVENT DATE: 20150604
